FAERS Safety Report 6600513-8 (Version None)
Quarter: 2010Q1

REPORT INFORMATION
  Report Type: 
  Country: None (occurrence: None)
  Receive Date: 20100224
  Receipt Date: 20100222
  Transmission Date: 20100710
  Serious: Yes (Life-Threatening, Hospitalization)
  Sender: FDA-Public Use
  Company Number: AU-MERCK-1002USA03323

PATIENT
  Age: 87 Year
  Sex: Female

DRUGS (6)
  1. TIMOPTIC [Suspect]
     Route: 047
  2. ROCURONIUM BROMIDE [Suspect]
     Route: 065
  3. FENTANYL [Concomitant]
     Route: 065
  4. MIDAZOLAM [Concomitant]
     Route: 065
  5. PILOCARPINE [Concomitant]
     Route: 047
  6. SEVOFLURANE [Concomitant]
     Route: 065

REACTIONS (1)
  - HYPERTENSIVE CRISIS [None]
